FAERS Safety Report 6528233-9 (Version None)
Quarter: 2010Q1

REPORT INFORMATION
  Report Type: 
  Country: None (occurrence: None)
  Receive Date: 20100106
  Receipt Date: 20091225
  Transmission Date: 20100710
  Serious: Yes (Other)
  Sender: FDA-Public Use
  Company Number: JP-BAYER-200915136BYL

PATIENT
  Age: 56 Year
  Sex: Female

DRUGS (4)
  1. NEXAVAR [Suspect]
     Indication: RENAL CELL CARCINOMA
     Dosage: UNIT DOSE: 200 MG
     Route: 048
     Dates: start: 20091118, end: 20091201
  2. NORVASC [Concomitant]
     Dosage: UNIT DOSE: 5 MG
     Route: 048
  3. NADIC [Concomitant]
     Dosage: UNIT DOSE: 30 MG
     Route: 048
  4. MICARDIS [Concomitant]
     Dosage: UNIT DOSE: 40 MG
     Route: 048

REACTIONS (4)
  - ALOPECIA [None]
  - DIARRHOEA [None]
  - HEPATIC FUNCTION ABNORMAL [None]
  - PALMAR-PLANTAR ERYTHRODYSAESTHESIA SYNDROME [None]
